FAERS Safety Report 8919308 (Version 5)
Quarter: 2013Q4

REPORT INFORMATION
  Report Type: Report from Study
  Country: JP (occurrence: JP)
  Receive Date: 20121121
  Receipt Date: 20131125
  Transmission Date: 20140711
  Serious: Yes (Hospitalization, Other)
  Sender: FDA-Public Use
  Company Number: JP-VERTEX PHARMACEUTICAL INC.-2012-024975

PATIENT
  Age: 69 Year
  Sex: Male

DRUGS (20)
  1. VX-950 (TELAPREVIR) [Suspect]
     Indication: CHRONIC HEPATITIS C
     Dosage: 2250 MG, QD
     Route: 048
     Dates: start: 20120925, end: 20120928
  2. VX-950 (TELAPREVIR) [Suspect]
     Dosage: 1500 MG, QD
     Route: 048
     Dates: start: 20120929, end: 20121020
  3. PEGINTERFERON ALFA-2B [Suspect]
     Indication: CHRONIC HEPATITIS C
     Dosage: 1.5 ?G/KG, QW
     Route: 058
     Dates: start: 20120925, end: 20121022
  4. RIBAVIRIN [Suspect]
     Indication: CHRONIC HEPATITIS C
     Dosage: 800 MG, QD
     Route: 048
     Dates: start: 20120925, end: 20121001
  5. RIBAVIRIN [Suspect]
     Dosage: 600 MG, QD
     Route: 048
     Dates: start: 20121002, end: 20121008
  6. RIBAVIRIN [Suspect]
     Dosage: 400 MG, QD
     Route: 048
     Dates: start: 20121009, end: 20121020
  7. GASTER D [Concomitant]
     Dosage: 40 MG, QD
     Route: 048
     Dates: end: 20121020
  8. GASTER D [Concomitant]
     Dosage: 40 MG, QD
     Route: 048
     Dates: start: 20121030, end: 20121109
  9. MAGNESIUM OXIDE [Concomitant]
     Dosage: 1.8 G, QD
     Route: 048
     Dates: end: 20121020
  10. SENNOSIDE [Concomitant]
     Dosage: 12 MG, PRN
     Route: 048
     Dates: end: 20121020
  11. LANTUS [Concomitant]
     Dosage: 22 UT, QD
     Route: 058
     Dates: end: 20121020
  12. LANTUS [Concomitant]
     Dosage: 6 UT, QD
     Route: 058
     Dates: start: 20121022, end: 20121107
  13. PREDONINE [Concomitant]
     Dosage: 15 MG, QD
     Route: 048
     Dates: start: 20120929, end: 20121020
  14. ALOSITOL [Concomitant]
     Dosage: 100 MG, QD
     Route: 048
     Dates: start: 20120929, end: 20121020
  15. LOPERAMIDE [Concomitant]
     Dosage: 1 CAP, QD, AS NEEDED
     Route: 048
     Dates: start: 20121016, end: 20121020
  16. URIEF [Concomitant]
     Dosage: 8 MG, QD
     Route: 048
     Dates: start: 20121106
  17. AVOLVE [Concomitant]
     Dosage: 0.5 MG, QD
     Route: 048
     Dates: start: 20121106
  18. AMARYL [Concomitant]
     Dosage: 1 MG, QD
     Route: 048
     Dates: start: 20121108
  19. TAKEPRON [Concomitant]
     Dosage: 15 MG, QD
     Route: 048
     Dates: start: 20121110
  20. BAYASPIRIN [Concomitant]
     Dosage: 100 MG, QD
     Route: 048
     Dates: start: 20121110

REACTIONS (8)
  - Altered state of consciousness [Unknown]
  - Hyperkalaemia [Unknown]
  - Cerebral infarction [Recovered/Resolved]
  - Rhabdomyolysis [Unknown]
  - Renal failure acute [Recovered/Resolved]
  - Hyperuricaemia [Recovered/Resolved]
  - Haemoglobin decreased [Not Recovered/Not Resolved]
  - Diarrhoea [Recovered/Resolved]
